FAERS Safety Report 16068310 (Version 1)
Quarter: 2019Q1

REPORT INFORMATION
  Report Type: Spontaneous
  Country: NL (occurrence: NL)
  Receive Date: 20190313
  Receipt Date: 20190313
  Transmission Date: 20190418
  Serious: Yes (Disabling, Other)
  Sender: FDA-Public Use
  Company Number: NL-PFIZER INC-2019104451

PATIENT
  Sex: Female

DRUGS (1)
  1. XALKORI [Suspect]
     Active Substance: CRIZOTINIB
     Dosage: UNK
     Dates: start: 201712, end: 201804

REACTIONS (7)
  - Thinking abnormal [Recovered/Resolved]
  - Weight increased [Recovered/Resolved]
  - Speech disorder [Recovered/Resolved]
  - Blindness [Recovered/Resolved]
  - Liver disorder [Recovered/Resolved]
  - Gait inability [Recovered/Resolved]
  - Neoplasm progression [Recovered/Resolved]
